FAERS Safety Report 11197016 (Version 1)
Quarter: 2015Q2

REPORT INFORMATION
  Report Type: Spontaneous
  Country: US (occurrence: US)
  Receive Date: 20150617
  Receipt Date: 20150617
  Transmission Date: 20150821
  Serious: No
  Sender: FDA-Public Use
  Company Number: US-PFIZER INC-2015196769

PATIENT
  Age: 58 Year
  Sex: Female
  Weight: 75 kg

DRUGS (3)
  1. CELEBREX [Suspect]
     Active Substance: CELECOXIB
     Dosage: TWO 200MG CELEBREX ONCE A DAY
  2. MELOXICAM. [Concomitant]
     Active Substance: MELOXICAM
     Dosage: 15 MG, TAKING THAT BEFORE SHE RECEIVED THE ARTHROTEC PRESCRIPTION
  3. CELEBREX [Suspect]
     Active Substance: CELECOXIB
     Indication: ARTHRITIS
     Dosage: 400 MG, 1X/DAY (ONE EVERY MORNING)

REACTIONS (4)
  - Gastrointestinal injury [Not Recovered/Not Resolved]
  - Drug ineffective [Unknown]
  - Bone disorder [Unknown]
  - Hip deformity [Unknown]

NARRATIVE: CASE EVENT DATE: 20150326
